FAERS Safety Report 4552011-3 (Version None)
Quarter: 2004Q4

REPORT INFORMATION
  Report Type: 
  Country: None (occurrence: None)
  Receive Date: 20041217
  Receipt Date: 20040817
  Transmission Date: 20050328
  Serious: No
  Sender: FDA-Public Use
  Company Number: 2004-BP-06989BP

PATIENT
  Age: 80 Year
  Sex: Female

DRUGS (6)
  1. SPIRIVA [Suspect]
     Indication: CHRONIC OBSTRUCTIVE AIRWAYS DISEASE
     Dosage: 18 MCG (18 MCG, ONCE DAILY), IH
     Route: 055
     Dates: start: 20040720
  2. PLAVIX [Suspect]
  3. ZOCOR [Concomitant]
  4. CALCIUM GLUCONATE [Concomitant]
  5. ASA (ACETYLSLICYLIC ACID) [Concomitant]
  6. POTASSIUM [Concomitant]

REACTIONS (3)
  - DYSPHONIA [None]
  - PULMONARY CONGESTION [None]
  - THROAT IRRITATION [None]
